FAERS Safety Report 23941699 (Version 1)
Quarter: 2024Q2

REPORT INFORMATION
  Report Type: Spontaneous
  Country: SE (occurrence: SE)
  Receive Date: 20240605
  Receipt Date: 20240605
  Transmission Date: 20240716
  Serious: Yes (Other)
  Sender: FDA-Public Use
  Company Number: None

PATIENT
  Age: 40 Year
  Sex: Female
  Weight: 64 kg

DRUGS (1)
  1. AJOVY [Suspect]
     Active Substance: FREMANEZUMAB-VFRM
     Indication: Migraine
     Dosage: 1 TIMES/MONTH DOSE: LATER DOSE
     Route: 058
     Dates: start: 20221024

REACTIONS (1)
  - Graves^ disease [Recovering/Resolving]

NARRATIVE: CASE EVENT DATE: 20230801
